FAERS Safety Report 17370793 (Version 1)
Quarter: 2020Q1

REPORT INFORMATION
  Report Type: Spontaneous
  Country: US (occurrence: US)
  Receive Date: 20200205
  Receipt Date: 20200205
  Transmission Date: 20200409
  Serious: No
  Sender: FDA-Public Use
  Company Number: US-SA-2020SA024908

PATIENT
  Age: 41 Year

DRUGS (1)
  1. GOLD BOND ULTIMATE CRACKED SKIN FILL AND PROTECT [Suspect]
     Active Substance: PETROLATUM
     Indication: SKIN DISORDER
     Dosage: UNK
     Dates: start: 202001

REACTIONS (1)
  - Drug ineffective [Unknown]

NARRATIVE: CASE EVENT DATE: 20200118
